FAERS Safety Report 25892523 (Version 2)
Quarter: 2025Q4

REPORT INFORMATION
  Report Type: Spontaneous
  Country: BR (occurrence: BR)
  Receive Date: 20251007
  Receipt Date: 20251017
  Transmission Date: 20260118
  Serious: Yes (Other)
  Sender: ABBVIE
  Company Number: BR-ABBOTT-2025A-1402625

PATIENT
  Sex: Female
  Weight: 98 kg

DRUGS (3)
  1. SYNTHROID [Suspect]
     Active Substance: LEVOTHYROXINE SODIUM
     Indication: Hormone replacement therapy
     Dosage: 100MCG ONCE A DAY IN THE MORNING ON AN EMPTY STOMACH; STARTED MORE THAN 10 YEARS
     Route: 048
     Dates: start: 2013
  2. SYNTHROID [Suspect]
     Active Substance: LEVOTHYROXINE SODIUM
     Indication: Hormone replacement therapy
     Dosage: DOSE REDUCED
     Route: 048
  3. CABERGOLINE [Concomitant]
     Active Substance: CABERGOLINE
     Indication: Prolactin-producing pituitary tumour

REACTIONS (11)
  - Laboratory test abnormal [Not Recovered/Not Resolved]
  - Nephrectomy [Recovered/Resolved]
  - Pain in extremity [Not Recovered/Not Resolved]
  - Meniscus operation [Recovered/Resolved]
  - Weight increased [Not Recovered/Not Resolved]
  - Swelling [Not Recovered/Not Resolved]
  - Prolactin-producing pituitary tumour [Unknown]
  - Tachycardia [Recovered/Resolved]
  - Fatigue [Not Recovered/Not Resolved]
  - Chest pain [Not Recovered/Not Resolved]
  - Fatigue [Not Recovered/Not Resolved]

NARRATIVE: CASE EVENT DATE: 20220101
